FAERS Safety Report 9425498 (Version 1)
Quarter: 2013Q3

REPORT INFORMATION
  Report Type: Spontaneous
  Country: US (occurrence: US)
  Receive Date: 20130729
  Receipt Date: 20130729
  Transmission Date: 20140515
  Serious: Yes (Life-Threatening)
  Sender: FDA-Public Use
  Company Number: US-ROXANE LABORATORIES, INC.-2013-RO-01230RO

PATIENT
  Age: 14 Year
  Sex: Female

DRUGS (4)
  1. CYCLOPHOSPHAMIDE TABLETS USP [Suspect]
     Indication: ALLERGIC GRANULOMATOUS ANGIITIS
     Route: 048
  2. AZATHIOPRINE [Suspect]
     Indication: ALLERGIC GRANULOMATOUS ANGIITIS
  3. CORTICOSTEROIDS [Suspect]
     Indication: ALLERGIC GRANULOMATOUS ANGIITIS
     Route: 048
  4. CORTICOSTEROIDS [Suspect]
     Route: 042

REACTIONS (1)
  - Cardiac failure [Unknown]
